FAERS Safety Report 7637009-0 (Version None)
Quarter: 2011Q3

REPORT INFORMATION
  Report Type: 
  Country: None (occurrence: None)
  Receive Date: 20110726
  Receipt Date: 20110721
  Transmission Date: 20111222
  Serious: Yes (Hospitalization, Other)
  Sender: FDA-Public Use
  Company Number: FR-PFIZER INC-2011161572

PATIENT
  Age: 48 Year
  Sex: Female

DRUGS (9)
  1. ATARAX [Suspect]
     Indication: INSOMNIA
     Dosage: 25 MG, 1X/DAY
     Route: 048
     Dates: start: 20110507, end: 20110517
  2. PREDNISOLONE [Suspect]
     Indication: PROCTOCOLITIS
     Dosage: UNK
     Route: 048
     Dates: start: 20110512, end: 20110527
  3. ACETAMINOPHEN [Suspect]
     Indication: PAIN
     Dosage: 1 G, 4X/DAY
     Route: 048
     Dates: start: 20110503, end: 20110517
  4. SOLU-MEDROL [Suspect]
     Indication: PROCTOCOLITIS
     Dosage: 60 MG, 1X/DAY
     Route: 042
     Dates: start: 20110511, end: 20110602
  5. LOVENOX [Suspect]
     Indication: PULMONARY EMBOLISM
     Dosage: 4000 IU, 1X/DAY
     Route: 058
     Dates: start: 20110503, end: 20110603
  6. ACETAMINOPHEN [Suspect]
     Indication: PYREXIA
  7. CALCIUM CARBONATE [Suspect]
     Indication: HYPOCALCAEMIA
     Dosage: 500 MG, 1X/DAY
     Route: 048
     Dates: start: 20110511
  8. VENOFER [Concomitant]
     Dosage: UNK
     Dates: start: 20110528, end: 20110601
  9. POTASSIUM CHLORIDE [Suspect]
     Indication: HYPOKALAEMIA
     Dosage: 1200 MG, 3X/DAY
     Dates: start: 20110505

REACTIONS (5)
  - HEPATOMEGALY [None]
  - LIVER INJURY [None]
  - CHOLELITHIASIS [None]
  - HYPOKALAEMIA [None]
  - HYPOCALCAEMIA [None]
